FAERS Safety Report 4889954-7 (Version None)
Quarter: 2006Q1

REPORT INFORMATION
  Report Type: 
  Country: None (occurrence: None)
  Receive Date: 20060123
  Receipt Date: 20060110
  Transmission Date: 20060701
  Serious: Yes (Other)
  Sender: FDA-Public Use
  Company Number: 2005081311

PATIENT

DRUGS (5)
  1. LIPITOR [Suspect]
     Indication: HYPERLIPIDAEMIA
     Dates: start: 20041214, end: 20050308
  2. ZOSTRIX (CAPSAICIN) [Concomitant]
  3. ACETYLSALICYLIC ACID ENTERIC COATED (ACETYLSALICYLIC ACID) [Concomitant]
  4. EXTRA STRENGTH TYLENOL [Concomitant]
  5. CLARINEX [Concomitant]

REACTIONS (5)
  - BEDRIDDEN [None]
  - BLOOD PRESSURE INCREASED [None]
  - HEPATIC FAILURE [None]
  - HYPERSENSITIVITY [None]
  - RESPIRATORY RATE INCREASED [None]
